FAERS Safety Report 18185739 (Version 1)
Quarter: 2020Q3

REPORT INFORMATION
  Report Type: Other
  Country: GB (occurrence: GB)
  Receive Date: 20200824
  Receipt Date: 20200824
  Transmission Date: 20201103
  Serious: Yes (Other)
  Sender: FDA-Public Use
  Company Number: GB-ROCHE-2281473

PATIENT
  Sex: Female

DRUGS (7)
  1. METHOTREXATE. [Concomitant]
     Active Substance: METHOTREXATE
  2. GABAPENTIN. [Concomitant]
     Active Substance: GABAPENTIN
  3. AMBROXOL [Concomitant]
     Active Substance: AMBROXOL
  4. COCODAMOL [Concomitant]
     Active Substance: ACETAMINOPHEN\CODEINE PHOSPHATE
  5. TRAMADOL. [Concomitant]
     Active Substance: TRAMADOL
  6. ROACTEMRA [Suspect]
     Active Substance: TOCILIZUMAB
     Indication: RHEUMATOID ARTHRITIS
     Dosage: 27/SEP/2018
     Route: 058
     Dates: start: 20180921
  7. FOLIC ACID. [Concomitant]
     Active Substance: FOLIC ACID

REACTIONS (8)
  - Feeling hot [Unknown]
  - Malaise [Unknown]
  - Dizziness [Unknown]
  - Gastric disorder [Unknown]
  - Urinary tract infection [Unknown]
  - Infection [Unknown]
  - Urine output increased [Unknown]
  - Enteritis infectious [Unknown]
